FAERS Safety Report 5603945-X (Version None)
Quarter: 2008Q1

REPORT INFORMATION
  Report Type: 
  Country: None (occurrence: None)
  Receive Date: 20080124
  Receipt Date: 20080124
  Transmission Date: 20080703
  Serious: No
  Sender: FDA-Public Use
  Company Number: None

PATIENT
  Age: 36 Year
  Sex: Male
  Weight: 201.8507 kg

DRUGS (1)
  1. HEPARIN [Suspect]
     Indication: INTRAVENOUS CATHETER MANAGEMENT
     Dosage: 5ML (500 UNITS) EVERY 8 HRS IV
     Route: 042
     Dates: start: 20071129, end: 20071201

REACTIONS (2)
  - CHILLS [None]
  - PYREXIA [None]
